FAERS Safety Report 8427390-7 (Version None)
Quarter: 2012Q2

REPORT INFORMATION
  Report Type: 
  Country: None (occurrence: None)
  Receive Date: 20120611
  Receipt Date: 20120601
  Transmission Date: 20120825
  Serious: Yes (Hospitalization, Disabling, Other)
  Sender: FDA-Public Use
  Company Number: US-MERCK-1201USA03705

PATIENT
  Age: 74 Year
  Sex: Female
  Weight: 75 kg

DRUGS (10)
  1. FOSAMAX [Suspect]
     Route: 048
     Dates: start: 20080411, end: 20100501
  2. CLARINEX [Concomitant]
     Route: 065
  3. FOSAMAX [Suspect]
     Route: 048
  4. FOSAMAX [Suspect]
     Indication: OSTEOPOROSIS
     Route: 048
     Dates: start: 20010227, end: 20080401
  5. MEPROBAMATE [Concomitant]
     Route: 065
  6. ZYRTEC [Concomitant]
     Indication: RHINITIS ALLERGIC
     Route: 048
     Dates: start: 20021206
  7. PREMARIN [Concomitant]
     Route: 065
  8. VIOXX [Concomitant]
     Indication: BURSITIS
     Route: 048
     Dates: start: 20010110
  9. CLARITIN [Concomitant]
     Indication: RHINITIS ALLERGIC
     Route: 048
  10. CALCIUM (UNSPECIFIED) [Concomitant]
     Route: 065

REACTIONS (32)
  - LOW TURNOVER OSTEOPATHY [None]
  - HYPOTHYROIDISM [None]
  - FEMUR FRACTURE [None]
  - DEVICE FAILURE [None]
  - HEAD INJURY [None]
  - FRACTURE NONUNION [None]
  - HEPARIN-INDUCED THROMBOCYTOPENIA [None]
  - HAEMORRHAGIC ANAEMIA [None]
  - ADVERSE EVENT [None]
  - URINARY INCONTINENCE [None]
  - DEPRESSION [None]
  - FALL [None]
  - OEDEMA [None]
  - THYROID NEOPLASM [None]
  - BENIGN NEOPLASM OF SKIN [None]
  - ASYMPTOMATIC BACTERIURIA [None]
  - URINARY TRACT INFECTION [None]
  - PAIN [None]
  - DEAFNESS [None]
  - OSTEOPENIA [None]
  - NEUROPATHY PERIPHERAL [None]
  - SPONDYLOLISTHESIS [None]
  - UPPER RESPIRATORY TRACT INFECTION [None]
  - SPINAL OSTEOARTHRITIS [None]
  - CARPAL TUNNEL SYNDROME [None]
  - ANXIETY [None]
  - ARTHROPATHY [None]
  - HYPERTENSION [None]
  - DRUG INEFFECTIVE [None]
  - CONJUNCTIVITIS [None]
  - LOSS OF CONSCIOUSNESS [None]
  - OSTEOARTHRITIS [None]
